FAERS Safety Report 18109683 (Version 1)
Quarter: 2020Q3

REPORT INFORMATION
  Report Type: Spontaneous
  Country: US (occurrence: US)
  Receive Date: 20200804
  Receipt Date: 20200804
  Transmission Date: 20201103
  Serious: No
  Sender: FDA-Public Use
  Company Number: US-TELIGENT, INC-20191000034

PATIENT
  Sex: Female

DRUGS (2)
  1. DICLOFENAC SODIUM TOPICAL SOLUTION 1.5% [Suspect]
     Active Substance: DICLOFENAC SODIUM
     Indication: SPINAL OSTEOARTHRITIS
  2. DICLOFENAC SODIUM TOPICAL SOLUTION 1.5% [Suspect]
     Active Substance: DICLOFENAC SODIUM
     Indication: SPONDYLITIS
     Dosage: UNK

REACTIONS (4)
  - No adverse event [Unknown]
  - Off label use [Unknown]
  - Therapeutic response unexpected [Unknown]
  - Prescription drug used without a prescription [Unknown]
